FAERS Safety Report 16253380 (Version 1)
Quarter: 2019Q2

REPORT INFORMATION
  Report Type: Report from Study
  Country: AT (occurrence: AT)
  Receive Date: 20190430
  Receipt Date: 20190430
  Transmission Date: 20190711
  Serious: Yes (Hospitalization, Other)
  Sender: FDA-Public Use
  Company Number: AT-BRISTOL-MYERS SQUIBB COMPANY-BMS-2019-034761

PATIENT
  Age: 82 Year
  Sex: Female

DRUGS (1)
  1. NIVOLUMAB [Suspect]
     Active Substance: NIVOLUMAB
     Indication: SKIN SQUAMOUS CELL CARCINOMA METASTATIC
     Dosage: 240 MILLIGRAM
     Route: 042
     Dates: start: 20181106, end: 20190325

REACTIONS (8)
  - Aortic valve incompetence [Unknown]
  - Pulmonary hypertension [Unknown]
  - Cardiac failure [Not Recovered/Not Resolved]
  - Cardiac failure [Unknown]
  - Ventricular fibrillation [Unknown]
  - Mitral valve incompetence [Unknown]
  - Pleural effusion [Not Recovered/Not Resolved]
  - Atrial fibrillation [Unknown]

NARRATIVE: CASE EVENT DATE: 20190329
